FAERS Safety Report 8387350-1 (Version None)
Quarter: 2012Q2

REPORT INFORMATION
  Report Type: 
  Country: None (occurrence: None)
  Receive Date: 20120525
  Receipt Date: 20120411
  Transmission Date: 20120825
  Serious: Yes (Other)
  Sender: FDA-Public Use
  Company Number: US-ROCHE-775236

PATIENT
  Sex: Female

DRUGS (3)
  1. CLONAZEPAM [Suspect]
     Indication: POST-TRAUMATIC STRESS DISORDER
     Dosage: OTHER INDICATION: ANXIETY
     Route: 065
  2. PEGASYS [Suspect]
     Indication: HEPATITIS C
     Dosage: FORM: PRE-FILLED SYRINGE
     Route: 065
  3. COPEGUS [Suspect]
     Indication: HEPATITIS C
     Dosage: DIVIDED DOSES
     Route: 065

REACTIONS (7)
  - SOMNOLENCE [None]
  - INJECTION SITE MASS [None]
  - MENTAL IMPAIRMENT [None]
  - SUICIDAL IDEATION [None]
  - MENTAL DISORDER [None]
  - MENTAL STATUS CHANGES [None]
  - INFLUENZA LIKE ILLNESS [None]
